FAERS Safety Report 14946108 (Version 1)
Quarter: 2018Q2

REPORT INFORMATION
  Report Type: Spontaneous
  Country: US (occurrence: US)
  Receive Date: 20180508
  Receipt Date: 20180508
  Transmission Date: 20180711
  Serious: No
  Sender: FDA-Public Use
  Company Number: None

PATIENT
  Age: 61 Year
  Sex: Female

DRUGS (1)
  1. TEMOZOLOMIDE 140MG AND 100MG SANDOZ [Suspect]
     Active Substance: TEMOZOLOMIDE
     Indication: BRAIN NEOPLASM MALIGNANT
     Dosage: OTHER FREQUENCY:DAILY 5 DAYS EVERY;?
     Route: 048
     Dates: start: 20180219

REACTIONS (1)
  - Mental impairment [None]

NARRATIVE: CASE EVENT DATE: 20180401
